FAERS Safety Report 24463207 (Version 2)
Quarter: 2024Q4

REPORT INFORMATION
  Report Type: Spontaneous
  Country: US (occurrence: US)
  Receive Date: 20241018
  Receipt Date: 20241018
  Transmission Date: 20250114
  Serious: Yes (Hospitalization, Other)
  Sender: ALEXION PHARMACEUTICALS
  Company Number: US-AstraZeneca-2024A212515

PATIENT
  Age: 59 Year

DRUGS (55)
  1. SYMBICORT [Suspect]
     Active Substance: BUDESONIDE\FORMOTEROL FUMARATE DIHYDRATE
  2. SYMBICORT [Suspect]
     Active Substance: BUDESONIDE\FORMOTEROL FUMARATE DIHYDRATE
  3. SYMBICORT [Suspect]
     Active Substance: BUDESONIDE\FORMOTEROL FUMARATE DIHYDRATE
  4. SYMBICORT [Suspect]
     Active Substance: BUDESONIDE\FORMOTEROL FUMARATE DIHYDRATE
  5. SEROQUEL [Suspect]
     Active Substance: QUETIAPINE FUMARATE
  6. SEROQUEL [Suspect]
     Active Substance: QUETIAPINE FUMARATE
  7. SEROQUEL [Suspect]
     Active Substance: QUETIAPINE FUMARATE
  8. SEROQUEL [Suspect]
     Active Substance: QUETIAPINE FUMARATE
  9. METOPROLOL [Suspect]
     Active Substance: METOPROLOL
     Route: 065
  10. METOPROLOL [Suspect]
     Active Substance: METOPROLOL
  11. METOPROLOL [Suspect]
     Active Substance: METOPROLOL
     Route: 065
  12. METOPROLOL [Suspect]
     Active Substance: METOPROLOL
  13. KORLYM [Suspect]
     Active Substance: MIFEPRISTONE
     Dosage: 600 MILLIGRAM, QD
  14. KORLYM [Suspect]
     Active Substance: MIFEPRISTONE
     Dosage: 600 MILLIGRAM, QD
  15. KORLYM [Suspect]
     Active Substance: MIFEPRISTONE
     Dosage: 300 MILLIGRAM, QD
  16. KORLYM [Suspect]
     Active Substance: MIFEPRISTONE
     Dosage: 300 MILLIGRAM, QD
  17. BUSPIRONE [Suspect]
     Active Substance: BUSPIRONE HYDROCHLORIDE
     Indication: Product used for unknown indication
  18. BUSPIRONE [Suspect]
     Active Substance: BUSPIRONE HYDROCHLORIDE
     Route: 065
  19. WELLBUTRIN [Suspect]
     Active Substance: BUPROPION HYDROCHLORIDE
  20. WELLBUTRIN [Suspect]
     Active Substance: BUPROPION HYDROCHLORIDE
     Route: 065
  21. ALBUTEROL [Concomitant]
     Active Substance: ALBUTEROL
  22. ALBUTEROL [Concomitant]
     Active Substance: ALBUTEROL
     Route: 065
  23. ATORVASTATIN [Concomitant]
     Active Substance: ATORVASTATIN
  24. CYMBALTA [Concomitant]
     Active Substance: DULOXETINE HYDROCHLORIDE
  25. CYMBALTA [Concomitant]
     Active Substance: DULOXETINE HYDROCHLORIDE
     Route: 065
  26. FAMOTIDINE [Concomitant]
     Active Substance: FAMOTIDINE
  27. FAMOTIDINE [Concomitant]
     Active Substance: FAMOTIDINE
     Route: 065
  28. HYDROCHLOROTHIAZIDE [Concomitant]
     Active Substance: HYDROCHLOROTHIAZIDE
  29. HYDROCHLOROTHIAZIDE [Concomitant]
     Active Substance: HYDROCHLOROTHIAZIDE
     Route: 065
  30. JARDIANCE [Concomitant]
     Active Substance: EMPAGLIFLOZIN
  31. JARDIANCE [Concomitant]
     Active Substance: EMPAGLIFLOZIN
     Route: 065
  32. FUROSEMIDE [Concomitant]
     Active Substance: FUROSEMIDE
  33. FUROSEMIDE [Concomitant]
     Active Substance: FUROSEMIDE
     Route: 065
  34. LOSARTAN [Concomitant]
     Active Substance: LOSARTAN
  35. LOSARTAN [Concomitant]
     Active Substance: LOSARTAN
     Route: 065
  36. MELOXICAM [Concomitant]
     Active Substance: MELOXICAM
  37. MELOXICAM [Concomitant]
     Active Substance: MELOXICAM
     Route: 065
  38. METFORMIN [Concomitant]
     Active Substance: METFORMIN HYDROCHLORIDE
  39. METFORMIN [Concomitant]
     Active Substance: METFORMIN HYDROCHLORIDE
     Route: 065
  40. MONTELUKAST [Concomitant]
     Active Substance: MONTELUKAST
  41. MONTELUKAST [Concomitant]
     Active Substance: MONTELUKAST
     Route: 065
  42. MOUNJARO [Concomitant]
     Active Substance: TIRZEPATIDE
  43. MOUNJARO [Concomitant]
     Active Substance: TIRZEPATIDE
     Route: 065
  44. PIOGLITAZONE [Concomitant]
     Active Substance: PIOGLITAZONE
  45. PIOGLITAZONE [Concomitant]
     Active Substance: PIOGLITAZONE
     Route: 065
  46. POTASSIUM CHLORIDE [Concomitant]
     Active Substance: POTASSIUM CHLORIDE
  47. POTASSIUM CHLORIDE [Concomitant]
     Active Substance: POTASSIUM CHLORIDE
     Route: 065
  48. TERAZOSIN [Concomitant]
     Active Substance: TERAZOSIN HYDROCHLORIDE
  49. TERAZOSIN [Concomitant]
     Active Substance: TERAZOSIN HYDROCHLORIDE
     Route: 065
  50. TRAZODONE [Concomitant]
     Active Substance: TRAZODONE HYDROCHLORIDE
  51. TRAZODONE [Concomitant]
     Active Substance: TRAZODONE HYDROCHLORIDE
     Route: 065
  52. ZOLPIDEM [Suspect]
     Active Substance: ZOLPIDEM TARTRATE
  53. ZOLPIDEM [Suspect]
     Active Substance: ZOLPIDEM TARTRATE
     Route: 065
  54. ASPIRIN [Concomitant]
     Active Substance: ASPIRIN
  55. ASPIRIN [Concomitant]
     Active Substance: ASPIRIN
     Route: 065

REACTIONS (20)
  - Atrial fibrillation [Unknown]
  - Tremor [Not Recovered/Not Resolved]
  - Influenza like illness [Recovered/Resolved]
  - Pain [Recovered/Resolved]
  - Nightmare [Not Recovered/Not Resolved]
  - Oedema [Recovering/Resolving]
  - Constipation [Not Recovered/Not Resolved]
  - Muscle spasms [Not Recovered/Not Resolved]
  - Blood calcium increased [Unknown]
  - Anxiety [Not Recovered/Not Resolved]
  - Arthralgia [Not Recovered/Not Resolved]
  - Back pain [Not Recovered/Not Resolved]
  - Oxygen saturation decreased [Unknown]
  - Blood pressure diastolic increased [Unknown]
  - Blood glucose decreased [Unknown]
  - Dizziness [Unknown]
  - Depression [Unknown]
  - Feeling abnormal [Unknown]
  - Heart rate decreased [Unknown]
  - Bradycardia [Unknown]
